FAERS Safety Report 25914184 (Version 1)
Quarter: 2025Q4

REPORT INFORMATION
  Report Type: Spontaneous
  Country: EU (occurrence: EU)
  Receive Date: 20251013
  Receipt Date: 20251013
  Transmission Date: 20260117
  Serious: Yes (Other)
  Sender: ROCHE
  Company Number: EU-ROCHE-10000404996

PATIENT
  Age: 72 Year
  Sex: Female

DRUGS (1)
  1. EMICIZUMAB [Suspect]
     Active Substance: EMICIZUMAB
     Indication: Acquired haemophilia
     Dosage: LOADING DOSE OF 3 MG/KG WEEKLY
     Route: 065
     Dates: start: 20240614

REACTIONS (4)
  - Intentional product use issue [Unknown]
  - Endocarditis [Unknown]
  - Septic cerebral embolism [Unknown]
  - Oesophagitis ulcerative [Recovering/Resolving]
